FAERS Safety Report 12736819 (Version 2)
Quarter: 2016Q3

REPORT INFORMATION
  Report Type: Spontaneous
  Country: IT (occurrence: IT)
  Receive Date: 20160913
  Receipt Date: 20160927
  Transmission Date: 20161109
  Serious: Yes (Hospitalization)
  Sender: FDA-Public Use
  Company Number: IT-ROCHE-1829637

PATIENT
  Age: 66 Year
  Sex: Female

DRUGS (6)
  1. DEFLAN [Concomitant]
     Active Substance: DEFLAZACORT
  2. FOLINA (ITALY) [Concomitant]
  3. ROCALTROL [Concomitant]
     Active Substance: CALCITRIOL
  4. ROACTEMRA [Suspect]
     Active Substance: TOCILIZUMAB
     Indication: PSORIATIC ARTHROPATHY
     Route: 058
     Dates: start: 20151101, end: 20160215
  5. TICLOPIDINE [Concomitant]
     Active Substance: TICLOPIDINE
  6. OMEPRAZOLE. [Concomitant]
     Active Substance: OMEPRAZOLE

REACTIONS (3)
  - Laryngospasm [Recovered/Resolved]
  - Cough [Recovered/Resolved]
  - Dyspnoea [Recovered/Resolved]

NARRATIVE: CASE EVENT DATE: 20160222
